FAERS Safety Report 8953057 (Version 1)
Quarter: 2012Q4

REPORT INFORMATION
  Report Type: Report from Study
  Country: DE (occurrence: DE)
  Receive Date: 20121205
  Receipt Date: 20121205
  Transmission Date: 20130627
  Serious: Yes (Other)
  Sender: FDA-Public Use
  Company Number: DE-B.I. PHARMACEUTICALS,INC./RIDGEFIELD-2012-DE-02909DE

PATIENT
  Age: 14 Month
  Sex: Female
  Weight: 9 kg

DRUGS (1)
  1. MICARDIS [Suspect]
     Dosage: 0.5 anz
     Route: 048
     Dates: start: 20121128

REACTIONS (1)
  - Medication error [Unknown]
